FAERS Safety Report 22281031 (Version 1)
Quarter: 2023Q2

REPORT INFORMATION
  Report Type: Report from Study
  Country: US (occurrence: US)
  Receive Date: 20230504
  Receipt Date: 20230504
  Transmission Date: 20230721
  Serious: Yes (Death, Other)
  Sender: FDA-Public Use
  Company Number: US-ABBVIE-4750322

PATIENT
  Sex: Male

DRUGS (1)
  1. CREON [Suspect]
     Active Substance: PANCRELIPASE AMYLASE\PANCRELIPASE LIPASE\PANCRELIPASE PROTEASE
     Indication: Pancreatic failure
     Dosage: FORM STRENGTH: 36000 UNIT??TWO CAPSULES BEFORE EACH MEAL AND ONE CAPSULE BEFORE SNACKS.
     Route: 048
     Dates: start: 2021, end: 20230425

REACTIONS (9)
  - Metastatic malignant melanoma [Fatal]
  - Abdominal pain upper [Unknown]
  - Gallbladder necrosis [Recovered/Resolved]
  - Malignant melanoma [Not Recovered/Not Resolved]
  - Metastatic malignant melanoma [Not Recovered/Not Resolved]
  - Malignant melanoma [Recovered/Resolved]
  - Abdominal neoplasm [Recovered/Resolved]
  - Pancreatic pseudocyst [Recovered/Resolved]
  - Pancreatic leak [Recovered/Resolved]

NARRATIVE: CASE EVENT DATE: 20210101
